FAERS Safety Report 7953641-9 (Version None)
Quarter: 2011Q4

REPORT INFORMATION
  Report Type: 
  Country: None (occurrence: None)
  Receive Date: 20111202
  Receipt Date: 20111130
  Transmission Date: 20120403
  Serious: Yes (Death, Other)
  Sender: FDA-Public Use
  Company Number: IE-AMGEN-IRLSP2011042067

PATIENT
  Age: 66 Year
  Sex: Female

DRUGS (9)
  1. ZOFRAN [Concomitant]
     Dosage: UNK UNK, PER CHEMO REGIM
  2. ADRIAMYCIN PFS [Concomitant]
     Indication: BREAST CANCER
     Dosage: UNK
     Dates: start: 20050729, end: 20060406
  3. TAXOL [Concomitant]
     Indication: BREAST CANCER
     Dosage: UNK
     Dates: start: 20051229, end: 20110120
  4. AVASTIN [Concomitant]
     Indication: BREAST CANCER
     Dosage: UNK
     Dates: start: 20100805, end: 20110120
  5. CYTOXAN [Concomitant]
     Indication: BREAST CANCER
     Dosage: UNK
     Dates: start: 20051229, end: 20060406
  6. NEULASTA [Suspect]
     Indication: CHEMOTHERAPY
     Dosage: 6 MG, QMO
     Route: 058
     Dates: start: 20051229, end: 20110720
  7. DOXORUBICIN HCL [Concomitant]
     Indication: METASTATIC NEOPLASM
     Dosage: UNK
     Dates: start: 20110622, end: 20110720
  8. DEXAMETHASONE [Concomitant]
     Dosage: 4 MG, PER CHEMO REGIM
  9. ZOLEDRONIC ACID [Concomitant]
     Indication: BREAST CANCER
     Dosage: UNK
     Dates: start: 20101104, end: 20110602

REACTIONS (2)
  - METASTASES TO LIVER [None]
  - BREAST CANCER RECURRENT [None]
